FAERS Safety Report 19408939 (Version 1)
Quarter: 2021Q2

REPORT INFORMATION
  Report Type: Spontaneous
  Country: DE (occurrence: DE)
  Receive Date: 20210613
  Receipt Date: 20210613
  Transmission Date: 20210717
  Serious: Yes (Hospitalization)
  Sender: FDA-Public Use
  Company Number: DE-SA-2021SA184981

PATIENT
  Age: 68 Year
  Sex: Female

DRUGS (14)
  1. BISACODYL. [Concomitant]
     Active Substance: BISACODYL
     Dosage: 10 MG, PRN
     Route: 065
  2. OXAZEPAM. [Concomitant]
     Active Substance: OXAZEPAM
     Dosage: 10 MG, IF NECESSARY
     Route: 065
  3. 5?FU [FLUOROURACIL] [Suspect]
     Active Substance: FLUOROURACIL
     Dosage: 800 MG, BOLUS, SOLUTION FOR INJECTION / INFUSION
     Route: 065
  4. FOLINIC ACID [Suspect]
     Active Substance: LEUCOVORIN
     Dosage: 800 MG
     Route: 042
  5. KALIUMCITRAT [Concomitant]
     Active Substance: POTASSIUM CITRATE
     Dosage: 1?0?1?0, TABLETS
     Route: 065
  6. 5?FU [FLUOROURACIL] [Suspect]
     Active Substance: FLUOROURACIL
     Dosage: 4800 MG, 48 H PUMP, SOLUTION FOR INJECTION / INFUSION
     Route: 042
  7. CANDESARTAN. [Concomitant]
     Active Substance: CANDESARTAN
     Dosage: 8 MG, 1?0?1?0, TABLETS
     Route: 065
  8. OXALIPLATIN. [Suspect]
     Active Substance: OXALIPLATIN
     Dosage: 170 MG, SOLUTION FOR INJECTION / INFUSION
     Route: 042
  9. METAMIZOLE [Concomitant]
     Active Substance: METAMIZOLE
     Dosage: 40 DROPS, 1?1?1?1, DROPS
     Route: 065
  10. ATORVASTATIN [Concomitant]
     Active Substance: ATORVASTATIN
     Dosage: 20 MG, 0?0?1?0, TABLETS
     Route: 065
  11. IRINOTECAN [Suspect]
     Active Substance: IRINOTECAN
     Dosage: 360 MG
     Route: 042
  12. EUTHYROX [Concomitant]
     Active Substance: LEVOTHYROXINE SODIUM
     Dosage: 150 G, 1?0?0?0, TABLETS
     Route: 065
  13. METOPROLOL SUCCINATE. [Concomitant]
     Active Substance: METOPROLOL SUCCINATE
     Dosage: 23.75 MG, 1?0?1?0, TABLETS
     Route: 065
  14. HCT [Concomitant]
     Active Substance: HYDROCHLOROTHIAZIDE
     Dosage: 25 MG, 0.5?0?0?0, TABLETS
     Route: 065

REACTIONS (4)
  - Nausea [Unknown]
  - Abdominal pain [Unknown]
  - Flatulence [Unknown]
  - Vomiting [Unknown]
